FAERS Safety Report 6312993-6 (Version None)
Quarter: 2009Q3

REPORT INFORMATION
  Report Type: 
  Country: None (occurrence: None)
  Receive Date: 20090814
  Receipt Date: 20090814
  Transmission Date: 20100115
  Serious: Yes (Other)
  Sender: FDA-Public Use
  Company Number: None

PATIENT
  Age: 59 Year
  Sex: Female
  Weight: 86.1834 kg

DRUGS (2)
  1. OXYBUTYNIN 3.9MG WATSON [Suspect]
     Indication: MICTURITION URGENCY
     Dosage: 3.9MG TWICE WEEKLY ID
     Route: 026
     Dates: start: 20080819, end: 20081001
  2. OXYBUTYNIN 3.9MG WATSON [Suspect]
     Indication: POLLAKIURIA
     Dosage: 3.9MG TWICE WEEKLY ID
     Route: 026
     Dates: start: 20080819, end: 20081001

REACTIONS (1)
  - ALOPECIA [None]
